FAERS Safety Report 4283099-5 (Version None)
Quarter: 2004Q1

REPORT INFORMATION
  Report Type: 
  Country: None (occurrence: None)
  Receive Date: 20040129
  Receipt Date: 20040122
  Transmission Date: 20041129
  Serious: Yes (Hospitalization, Other)
  Sender: FDA-Public Use
  Company Number: 2003192166US

PATIENT
  Age: 48 Year
  Sex: Male

DRUGS (2)
  1. BEXTRA [Suspect]
     Indication: BACK PAIN
     Dosage: 10 MG, QD, ORAL
     Route: 048
     Dates: start: 20030519, end: 20030617
  2. ACIPHEX [Concomitant]

REACTIONS (14)
  - ANURIA [None]
  - ASTHENIA [None]
  - BLOOD GLUCOSE INCREASED [None]
  - CONSTIPATION [None]
  - DECREASED APPETITE [None]
  - FATIGUE [None]
  - HAEMODIALYSIS [None]
  - HEADACHE [None]
  - NAUSEA [None]
  - NEPHRITIS INTERSTITIAL [None]
  - POLYURIA [None]
  - PYREXIA [None]
  - RENAL FAILURE ACUTE [None]
  - WEIGHT DECREASED [None]
